FAERS Safety Report 24132508 (Version 1)
Quarter: 2024Q3

REPORT INFORMATION
  Report Type: Spontaneous
  Country: US (occurrence: None)
  Receive Date: 20240723
  Receipt Date: 20240723
  Transmission Date: 20241017
  Serious: Yes (Life-Threatening, Hospitalization, Other)
  Sender: Public
  Company Number: None

PATIENT
  Age: 59 Year
  Sex: Male
  Weight: 90.9 kg

DRUGS (1)
  1. CARVYKTI [Suspect]
     Active Substance: CILTACABTAGENE AUTOLEUCEL
     Indication: Plasma cell myeloma
     Dates: start: 20240520, end: 20240520

REACTIONS (11)
  - Neurotoxicity [None]
  - Infusion related reaction [None]
  - Agitation [None]
  - Anxiety [None]
  - Flat affect [None]
  - Hypofibrinogenaemia [None]
  - Serum ferritin increased [None]
  - Blood triglycerides increased [None]
  - Thrombocytopenia [None]
  - Asthenia [None]
  - Bone marrow failure [None]

NARRATIVE: CASE EVENT DATE: 20240612
